FAERS Safety Report 21012635 (Version 1)
Quarter: 2022Q2

REPORT INFORMATION
  Report Type: Spontaneous
  Country: US (occurrence: None)
  Receive Date: 20220625
  Receipt Date: 20220625
  Transmission Date: 20220721
  Serious: No
  Sender: FDA-Public Use
  Company Number: None

PATIENT
  Age: 21 Year
  Sex: Female
  Weight: 65.77 kg

DRUGS (5)
  1. MIRENA [Suspect]
     Active Substance: LEVONORGESTREL
  2. ZOLOFT [Concomitant]
     Active Substance: SERTRALINE HYDROCHLORIDE
  3. TRESIBA [Concomitant]
     Active Substance: INSULIN DEGLUDEC
  4. FIASP [Concomitant]
     Active Substance: INSULIN ASPART
  5. ADVIL [Concomitant]
     Active Substance: IBUPROFEN

REACTIONS (13)
  - Pain [None]
  - Dizziness [None]
  - Dizziness [None]
  - Muscle spasms [None]
  - Abdominal pain [None]
  - Nausea [None]
  - Vomiting [None]
  - Gait inability [None]
  - Dysstasia [None]
  - Pain in extremity [None]
  - Hypoaesthesia [None]
  - Vaginal haemorrhage [None]
  - Infection [None]

NARRATIVE: CASE EVENT DATE: 20220616
